FAERS Safety Report 7684477-4 (Version None)
Quarter: 2011Q3

REPORT INFORMATION
  Report Type: 
  Country: None (occurrence: None)
  Receive Date: 20110816
  Receipt Date: 20110808
  Transmission Date: 20111222
  Serious: No
  Sender: FDA-Public Use
  Company Number: US-BIOGENIDEC-2011BI029012

PATIENT
  Sex: Female

DRUGS (1)
  1. TYSABRI [Suspect]
     Indication: MULTIPLE SCLEROSIS
     Route: 042
     Dates: start: 20090909, end: 20110328

REACTIONS (7)
  - COORDINATION ABNORMAL [None]
  - OVARIAN DISORDER [None]
  - VISUAL IMPAIRMENT [None]
  - FATIGUE [None]
  - GAIT DISTURBANCE [None]
  - BALANCE DISORDER [None]
  - VISUAL ACUITY REDUCED [None]
